FAERS Safety Report 21476434 (Version 1)
Quarter: 2022Q4

REPORT INFORMATION
  Report Type: Spontaneous
  Country: CN (occurrence: CN)
  Receive Date: 20221019
  Receipt Date: 20221019
  Transmission Date: 20230113
  Serious: Yes (Hospitalization, Other)
  Sender: FDA-Public Use
  Company Number: CN-MLMSERVICE-20220930-3830550-1

PATIENT
  Age: 37 Year
  Sex: Female

DRUGS (5)
  1. METHYLPREDNISOLONE [Suspect]
     Active Substance: METHYLPREDNISOLONE
     Indication: Optic neuritis
     Dosage: 8 MG, DAILY MAINTENANCE DOSE
     Dates: start: 202102
  2. METHYLPREDNISOLONE [Suspect]
     Active Substance: METHYLPREDNISOLONE
     Dosage: 40 MG
     Dates: start: 202102, end: 2021
  3. METHYLPREDNISOLONE [Suspect]
     Active Substance: METHYLPREDNISOLONE
     Dosage: UNK
     Route: 048
     Dates: start: 202102
  4. METHYLPREDNISOLONE SODIUM SUCCINATE [Suspect]
     Active Substance: METHYLPREDNISOLONE SODIUM SUCCINATE
     Indication: Optic neuritis
     Dosage: UNK
     Route: 042
     Dates: start: 202102, end: 2021
  5. MYCOPHENOLATE MOFETIL [Concomitant]
     Active Substance: MYCOPHENOLATE MOFETIL
     Indication: Optic neuritis
     Dosage: 1.5 G, 1X/DAY
     Dates: start: 202102

REACTIONS (1)
  - Central serous chorioretinopathy [Recovered/Resolved]

NARRATIVE: CASE EVENT DATE: 20210101
